FAERS Safety Report 6151155-2 (Version None)
Quarter: 2009Q2

REPORT INFORMATION
  Report Type: 
  Country: None (occurrence: None)
  Receive Date: 20090410
  Receipt Date: 20090403
  Transmission Date: 20091009
  Serious: Yes (Life-Threatening, Hospitalization, Disabling, Other)
  Sender: FDA-Public Use
  Company Number: FR-ELI_LILLY_AND_COMPANY-FR200903000259

PATIENT
  Sex: Female
  Weight: 96 kg

DRUGS (10)
  1. BYETTA [Suspect]
     Indication: TYPE 2 DIABETES MELLITUS
     Dosage: 10 UG, 2/D
     Route: 058
     Dates: start: 20080501, end: 20090104
  2. INSULIN [Concomitant]
     Dosage: UNK, UNKNOWN
     Route: 065
  3. METFORMIN HCL [Concomitant]
     Indication: TYPE 2 DIABETES MELLITUS
     Dosage: 3 G (1000MG X 3/D), DAILY (1/D)
     Route: 048
     Dates: start: 20010101, end: 20081101
  4. AMLODIPINE BESYLATE [Concomitant]
     Indication: HYPERTENSION
     Dosage: 10 MG, DAILY (1/D)
     Route: 048
     Dates: start: 20030101
  5. DIAMICRON [Concomitant]
     Indication: TYPE 2 DIABETES MELLITUS
     Dosage: 30 MG, DAILY (1/D)
     Route: 048
     Dates: start: 20080101
  6. LOTENSIN HCT [Concomitant]
     Indication: HYPERTENSION
     Dosage: 2 D/F, DAILY (1/D)
     Route: 048
     Dates: start: 20050101
  7. TENORMIN [Concomitant]
     Indication: HYPERTENSION
     Dosage: 50 MG, DAILY (1/D)
     Route: 048
     Dates: start: 20040101
  8. HYPERIUM [Concomitant]
     Indication: HYPERTENSION
     Dosage: 10 MG, DAILY (1/D)
     Route: 048
     Dates: start: 19970101
  9. STAGID [Concomitant]
     Indication: TYPE 2 DIABETES MELLITUS
     Dosage: 2.1 G (700MG, 3/D), DAILY (1/D)
     Dates: start: 20081101
  10. RED BLOOD CELLS [Concomitant]
     Dosage: 4 D/F, UNKNOWN
     Route: 065

REACTIONS (10)
  - ACUTE PULMONARY OEDEMA [None]
  - ANAEMIA [None]
  - ATRIAL FIBRILLATION [None]
  - DEHYDRATION [None]
  - GASTROENTERITIS [None]
  - LACTIC ACIDOSIS [None]
  - RENAL FAILURE ACUTE [None]
  - SHOCK [None]
  - THROMBOCYTOPENIA [None]
  - WEIGHT DECREASED [None]
